FAERS Safety Report 13391309 (Version 1)
Quarter: 2017Q1

REPORT INFORMATION
  Report Type: Spontaneous
  Country: US (occurrence: US)
  Receive Date: 20170331
  Receipt Date: 20170331
  Transmission Date: 20170429
  Serious: Yes (Other)
  Sender: FDA-Public Use
  Company Number: US-ELI_LILLY_AND_COMPANY-US201703008922

PATIENT
  Sex: Female

DRUGS (1)
  1. TRULICITY [Suspect]
     Active Substance: DULAGLUTIDE
     Indication: PRODUCT USED FOR UNKNOWN INDICATION
     Dosage: 1.5 MG, UNKNOWN
     Route: 058

REACTIONS (11)
  - Chronic obstructive pulmonary disease [Unknown]
  - Immune system disorder [Unknown]
  - Weight gain poor [Unknown]
  - Renal disorder [Unknown]
  - Pain [Unknown]
  - Hip fracture [Unknown]
  - Rib fracture [Unknown]
  - Type 2 diabetes mellitus [Unknown]
  - Hypersensitivity [Unknown]
  - Arthritis [Unknown]
  - Bone disorder [Unknown]
